FAERS Safety Report 18781566 (Version 1)
Quarter: 2021Q1

REPORT INFORMATION
  Report Type: Spontaneous
  Country: US (occurrence: US)
  Receive Date: 20210125
  Receipt Date: 20210125
  Transmission Date: 20210419
  Serious: Yes (Other)
  Sender: FDA-Public Use
  Company Number: US-PFIZER INC-2021042188

PATIENT
  Age: 75 Year
  Sex: Female

DRUGS (5)
  1. LETROZOLE. [Concomitant]
     Active Substance: LETROZOLE
     Dosage: 2.5 MG
  2. IBUPROFEN. [Concomitant]
     Active Substance: IBUPROFEN
     Dosage: UNK
  3. FISH OIL [Concomitant]
     Active Substance: FISH OIL
     Dosage: UNK
  4. VIT E [TOCOPHEROL] [Concomitant]
     Dosage: UNK
  5. IBRANCE [Suspect]
     Active Substance: PALBOCICLIB
     Indication: BREAST CANCER FEMALE
     Dosage: 75 MG, CYCLIC (ONE TABLET BY MOUTH FOR 21 DAYS, 7 DAYS OFF)
     Route: 048
     Dates: start: 202006

REACTIONS (1)
  - SARS-CoV-2 test positive [Unknown]

NARRATIVE: CASE EVENT DATE: 20210112
